FAERS Safety Report 7623005-6 (Version None)
Quarter: 2011Q3

REPORT INFORMATION
  Report Type: 
  Country: None (occurrence: None)
  Receive Date: 20110720
  Receipt Date: 20110708
  Transmission Date: 20111222
  Serious: Yes (Hospitalization)
  Sender: FDA-Public Use
  Company Number: US-JNJFOC-20110704681

PATIENT
  Sex: Female
  Weight: 43.09 kg

DRUGS (9)
  1. VITAMIN B-12 [Concomitant]
  2. ASCORBIC ACID [Concomitant]
  3. VITAMIN D W/ CALCIUM [Concomitant]
  4. FERROUS SULFATE TAB [Concomitant]
  5. INFLIXIMAB, RECOMBINANT [Suspect]
     Indication: CROHN'S DISEASE
     Route: 042
     Dates: start: 20080115, end: 20080908
  6. MULTI-VITAMINS [Concomitant]
  7. HYDROCORTISONE [Concomitant]
  8. VITAMIN B COMPLEX CAP [Concomitant]
  9. FOLIC ACID [Concomitant]

REACTIONS (1)
  - CROHN'S DISEASE [None]
